FAERS Safety Report 25458088 (Version 3)
Quarter: 2025Q3

REPORT INFORMATION
  Report Type: Spontaneous
  Country: JP (occurrence: JP)
  Receive Date: 20250620
  Receipt Date: 20250722
  Transmission Date: 20251020
  Serious: Yes (Other)
  Sender: TAKEDA
  Company Number: JP-TAKEDA-2025TJP001050

PATIENT
  Age: 8 Decade
  Sex: Female

DRUGS (2)
  1. FRUZAQLA [Suspect]
     Active Substance: FRUQUINTINIB
     Indication: Colon cancer recurrent
     Dosage: 5 MILLIGRAM, QD
     Dates: start: 20241227, end: 20250109
  2. FRUZAQLA [Suspect]
     Active Substance: FRUQUINTINIB

REACTIONS (7)
  - Metastases to peritoneum [Not Recovered/Not Resolved]
  - Oedema peripheral [Recovering/Resolving]
  - Malaise [Recovering/Resolving]
  - Blood thyroid stimulating hormone increased [Not Recovered/Not Resolved]
  - Proteinuria [Recovering/Resolving]
  - Decreased appetite [Recovering/Resolving]
  - Asthenia [Recovering/Resolving]

NARRATIVE: CASE EVENT DATE: 20250103
